FAERS Safety Report 8169417-6 (Version None)
Quarter: 2012Q1

REPORT INFORMATION
  Report Type: 
  Country: None (occurrence: None)
  Receive Date: 20120222
  Receipt Date: 20120214
  Transmission Date: 20120608
  Serious: Yes (Death)
  Sender: FDA-Public Use
  Company Number: B0782662A

PATIENT

DRUGS (4)
  1. ETOPOSIDE [Suspect]
     Indication: NEPHROBLASTOMA
     Dosage: 2400 MG/M2
  2. CARBOPLATIN [Suspect]
     Indication: NEPHROBLASTOMA
     Dosage: 2000 MG/M2
  3. MELPHALAN HYDROCHLORIDE [Suspect]
     Indication: NEPHROBLASTOMA
     Dosage: 180 MG/M2/
  4. CYCLOPHOSPHAMIDE [Suspect]
     Indication: NEPHROBLASTOMA
     Dosage: 4500 MG/M2

REACTIONS (1)
  - RENAL FAILURE ACUTE [None]
